FAERS Safety Report 4675509-6 (Version None)
Quarter: 2005Q2

REPORT INFORMATION
  Report Type: 
  Country: None (occurrence: None)
  Receive Date: 20050527
  Receipt Date: 20050328
  Transmission Date: 20051028
  Serious: No
  Sender: FDA-Public Use
  Company Number: US-BRISTOL-MYERS SQUIBB COMPANY-12912770

PATIENT
  Age: 50 Year
  Sex: Female

DRUGS (3)
  1. ABILIFY [Suspect]
     Dates: start: 20050201
  2. GLUCOPHAGE [Concomitant]
  3. SEROQUEL [Concomitant]

REACTIONS (1)
  - BLOOD GLUCOSE INCREASED [None]
